FAERS Safety Report 16320080 (Version 1)
Quarter: 2019Q2

REPORT INFORMATION
  Report Type: Spontaneous
  Country: US (occurrence: US)
  Receive Date: 20190516
  Receipt Date: 20190516
  Transmission Date: 20190711
  Serious: No
  Sender: FDA-Public Use
  Company Number: US-HIKMA PHARMACEUTICALS USA INC.-US-H14001-18-07265

PATIENT
  Sex: Male

DRUGS (14)
  1. PREDNISONE. [Suspect]
     Active Substance: PREDNISONE
     Dosage: 60, 40, 20
     Route: 048
     Dates: start: 201808
  2. METHOTREXATE. [Suspect]
     Active Substance: METHOTREXATE
     Indication: CHRONIC ACTINIC DERMATITIS
     Route: 048
     Dates: start: 201709, end: 201712
  3. PREDNISONE. [Suspect]
     Active Substance: PREDNISONE
     Dosage: 60, 40, 20
     Route: 048
     Dates: start: 20180524
  4. PLAQUENIL [Concomitant]
     Active Substance: HYDROXYCHLOROQUINE SULFATE
     Indication: CHRONIC ACTINIC DERMATITIS
     Route: 065
     Dates: start: 201804
  5. PREDNISONE. [Suspect]
     Active Substance: PREDNISONE
     Dosage: 60, 40, 20
     Route: 048
     Dates: start: 20171003
  6. DUPIXENT [Concomitant]
     Active Substance: DUPILUMAB
     Indication: CHRONIC ACTINIC DERMATITIS
     Route: 065
     Dates: start: 201712
  7. PREDNISONE. [Suspect]
     Active Substance: PREDNISONE
     Dosage: 60, 40, 20
     Route: 048
     Dates: start: 20160721
  8. PREDNISONE. [Suspect]
     Active Substance: PREDNISONE
     Dosage: 60, 40, 20
     Route: 048
     Dates: start: 20171103
  9. PREDNISONE. [Suspect]
     Active Substance: PREDNISONE
     Dosage: 60, 40, 20
     Route: 048
     Dates: start: 20180108
  10. PREDNISONE. [Suspect]
     Active Substance: PREDNISONE
     Dosage: 60, 40, 20
     Route: 048
     Dates: start: 20180125
  11. PREDNISONE. [Suspect]
     Active Substance: PREDNISONE
     Indication: CHRONIC ACTINIC DERMATITIS
     Dosage: 60, 40, 20
     Route: 048
     Dates: start: 20160518
  12. PREDNISONE. [Suspect]
     Active Substance: PREDNISONE
     Dosage: 60, 40, 20
     Route: 048
     Dates: start: 20160819
  13. TRIAMCINOLONE [Concomitant]
     Active Substance: TRIAMCINOLONE
     Indication: CHRONIC ACTINIC DERMATITIS
     Route: 065
     Dates: start: 201703, end: 201802
  14. CLOBETASOL [Concomitant]
     Active Substance: CLOBETASOL
     Indication: CHRONIC ACTINIC DERMATITIS
     Route: 065
     Dates: start: 201804

REACTIONS (4)
  - Drug ineffective [Unknown]
  - Off label use [Unknown]
  - Therapeutic product effect incomplete [Unknown]
  - Adverse drug reaction [Unknown]
